FAERS Safety Report 5924120-5 (Version None)
Quarter: 2008Q4

REPORT INFORMATION
  Report Type: 
  Country: None (occurrence: None)
  Receive Date: 20081020
  Receipt Date: 20081009
  Transmission Date: 20090506
  Serious: Yes (Hospitalization)
  Sender: FDA-Public Use
  Company Number: PHHO2008JP09239

PATIENT
  Sex: Male

DRUGS (19)
  1. NEORAL [Suspect]
     Indication: RENAL TRANSPLANT
     Dosage: 270 MG DAILY
     Route: 048
     Dates: start: 20080701, end: 20080731
  2. NEORAL [Suspect]
     Dosage: 250 MG DAILY
     Route: 048
     Dates: start: 20080801, end: 20080925
  3. NEORAL [Suspect]
     Dosage: 220 MG DAILY
     Route: 048
     Dates: start: 20080815, end: 20080925
  4. NEORAL [Suspect]
     Dosage: 235 MG
     Route: 048
     Dates: start: 20080925, end: 20080925
  5. NEORAL [Suspect]
     Dosage: 250 MG DAILY
     Route: 048
     Dates: start: 20080926
  6. MYCOPHENOLATE MOFETIL [Suspect]
     Indication: RENAL TRANSPLANT
     Dosage: 2000 MG DAILY
     Route: 048
     Dates: start: 20080517
  7. PREDNISOLONE [Suspect]
     Indication: RENAL TRANSPLANT
     Dosage: 10 MG DAILY
     Route: 048
     Dates: start: 20080604, end: 20080925
  8. PREDNISOLONE [Suspect]
     Dosage: 7.5 MG DAILY
     Route: 048
     Dates: start: 20080926
  9. DIOVAN [Concomitant]
     Indication: HYPERTENSION
     Dosage: 80 MG
     Route: 048
     Dates: start: 20080611
  10. DIOVAN [Concomitant]
     Dosage: 40 MG
     Route: 048
     Dates: start: 20080926
  11. COTRIM [Concomitant]
     Indication: PROPHYLAXIS
     Dosage: 1 DF
     Route: 048
     Dates: start: 20080522
  12. LANSOPRAZOLE [Concomitant]
     Indication: PROPHYLAXIS AGAINST GASTROINTESTINAL ULCER
  13. NORVASC [Concomitant]
     Indication: HYPERTENSION
  14. LIPITOR [Concomitant]
     Indication: HYPERCHOLESTEROLAEMIA
  15. FOSMICIN S [Concomitant]
     Indication: BIOPSY KIDNEY
  16. ATROPINE [Concomitant]
     Indication: BIOPSY KIDNEY
  17. XYLOCAINE [Concomitant]
     Indication: BIOPSY KIDNEY
  18. SIMULECT [Concomitant]
     Indication: RENAL TRANSPLANT
     Dosage: 20 ML, ONCE/SINGLE
     Dates: start: 20080516, end: 20080516
  19. SIMULECT [Concomitant]
     Dosage: 20 ML, ONCE/SINGLE
     Dates: start: 20080520, end: 20080520

REACTIONS (6)
  - ABDOMINAL CAVITY DRAINAGE [None]
  - BLOOD CREATININE INCREASED [None]
  - COMPLICATIONS OF TRANSPLANTED KIDNEY [None]
  - CONCOMITANT DISEASE PROGRESSION [None]
  - PROTEINURIA [None]
  - WOUND SECRETION [None]
